FAERS Safety Report 6494372-4 (Version None)
Quarter: 2009Q4

REPORT INFORMATION
  Report Type: 
  Country: None (occurrence: None)
  Receive Date: 20091214
  Receipt Date: 20090211
  Transmission Date: 20100525
  Serious: No
  Sender: FDA-Public Use
  Company Number: US-BRISTOL-MYERS SQUIBB COMPANY-14503015

PATIENT
  Age: 19 Year
  Sex: Female
  Weight: 77 kg

DRUGS (2)
  1. ABILIFY [Suspect]
     Indication: BIPOLAR DISORDER
     Dosage: DOSE INCREASED FROM 5MG TO 10MG.
  2. WELLBUTRIN [Concomitant]
     Indication: WEIGHT INCREASED

REACTIONS (2)
  - MEMORY IMPAIRMENT [None]
  - WEIGHT INCREASED [None]
